FAERS Safety Report 10708415 (Version 1)
Quarter: 2015Q1

REPORT INFORMATION
  Report Type: Spontaneous
  Country: US (occurrence: US)
  Receive Date: 20150113
  Receipt Date: 20150113
  Transmission Date: 20150721
  Serious: No
  Sender: FDA-Public Use
  Company Number: US-CELGENEUS-USA-2014112185

PATIENT
  Sex: Male
  Weight: 149.82 kg

DRUGS (2)
  1. OTEZLA [Suspect]
     Active Substance: APREMILAST
     Indication: PSORIASIS
     Route: 048
     Dates: start: 2014
  2. ASPIRIN. [Concomitant]
     Active Substance: ASPIRIN
     Indication: PRODUCT USED FOR UNKNOWN INDICATION
     Route: 065

REACTIONS (4)
  - Sinusitis [Not Recovered/Not Resolved]
  - Bone disorder [Not Recovered/Not Resolved]
  - Mouth swelling [Not Recovered/Not Resolved]
  - Coating in mouth [Not Recovered/Not Resolved]

NARRATIVE: CASE EVENT DATE: 2014
